FAERS Safety Report 8188698-6 (Version None)
Quarter: 2012Q1

REPORT INFORMATION
  Report Type: 
  Country: None (occurrence: None)
  Receive Date: 20120306
  Receipt Date: 20120227
  Transmission Date: 20120608
  Serious: Yes (Death, Other)
  Sender: FDA-Public Use
  Company Number: RO-JNJFOC-20120200804

PATIENT
  Sex: Male
  Weight: 60 kg

DRUGS (8)
  1. URSODIOL [Concomitant]
     Indication: CHOLANGITIS SCLEROSING
     Route: 048
     Dates: start: 20010101
  2. PROPRANOLOL [Concomitant]
     Indication: HEPATIC CIRRHOSIS
     Route: 048
     Dates: start: 20040601
  3. AZATHIOPRINE [Concomitant]
     Indication: CROHN'S DISEASE
     Route: 048
     Dates: start: 20020401
  4. SPIRONOLACTONE [Concomitant]
     Indication: HEPATIC CIRRHOSIS
     Route: 048
     Dates: start: 20040601
  5. PROPRANOLOL [Concomitant]
     Indication: PORTAL HYPERTENSION
     Route: 048
     Dates: start: 20040601
  6. INFLIXIMAB, RECOMBINANT [Suspect]
     Indication: CROHN'S DISEASE
     Route: 042
     Dates: start: 20030301, end: 20030301
  7. FUROSEMIDE [Concomitant]
     Indication: HEPATIC CIRRHOSIS
     Route: 048
     Dates: start: 20040601
  8. PREDNISONE TAB [Concomitant]
     Dates: start: 19860101, end: 20030101

REACTIONS (2)
  - BILE DUCT CANCER [None]
  - DRUG INEFFECTIVE [None]
